FAERS Safety Report 8618560-3 (Version None)
Quarter: 2012Q3

REPORT INFORMATION
  Report Type: 
  Country: None (occurrence: None)
  Receive Date: 20120824
  Receipt Date: 20120817
  Transmission Date: 20120928
  Serious: No
  Sender: FDA-Public Use
  Company Number: US-PFIZER INC-2012108127

PATIENT
  Age: 5 Year
  Sex: Female
  Weight: 13.605 kg

DRUGS (3)
  1. CHILDREN'S ADVIL [Suspect]
     Indication: MALAISE
  2. CHILDREN'S ADVIL [Suspect]
     Indication: BODY TEMPERATURE INCREASED
     Dosage: 100 MG, DAILY
     Dates: start: 20120128, end: 20120129
  3. CHILDREN'S ADVIL [Suspect]
     Indication: PYREXIA
     Dosage: 100 MG, THREE TIMES A DAY
     Route: 048
     Dates: start: 20120101, end: 20120101

REACTIONS (6)
  - ANXIETY [None]
  - FURUNCLE [None]
  - SWELLING FACE [None]
  - PRURITUS GENERALISED [None]
  - HYPERSENSITIVITY [None]
  - RASH GENERALISED [None]
